FAERS Safety Report 5457207-4 (Version None)
Quarter: 2007Q3

REPORT INFORMATION
  Report Type: 
  Country: None (occurrence: None)
  Receive Date: 20070918
  Receipt Date: 20070119
  Transmission Date: 20080115
  Serious: Yes (Hospitalization)
  Sender: FDA-Public Use
  Company Number: US-ASTRAZENECA-2007UW01033

PATIENT
  Age: 56 Year
  Sex: Male
  Weight: 96.6 kg

DRUGS (12)
  1. SEROQUEL [Suspect]
     Route: 048
  2. SEROQUEL [Suspect]
     Route: 048
  3. ABILIFY [Suspect]
     Route: 048
  4. GEODON [Suspect]
  5. DILTIAZEM HCL [Concomitant]
  6. GLIPIZIDE [Concomitant]
  7. METOPROLOL SUCCINATE [Concomitant]
  8. LISINOPRIL [Concomitant]
     Route: 048
  9. HYDROCHLOROTHIAZIDE [Concomitant]
  10. AVANDIA [Concomitant]
  11. GLUCOPHAGE [Concomitant]
  12. DEPAKENE [Concomitant]

REACTIONS (3)
  - AGITATION [None]
  - DELUSION [None]
  - PARANOIA [None]
